FAERS Safety Report 21376979 (Version 1)
Quarter: 2022Q3

REPORT INFORMATION
  Report Type: Report from Study
  Country: CA (occurrence: CA)
  Receive Date: 20220926
  Receipt Date: 20220926
  Transmission Date: 20221026
  Serious: Yes (Other)
  Sender: FDA-Public Use
  Company Number: CA-MYLANLABS-2022M1013677

PATIENT
  Age: 67 Year
  Sex: Male

DRUGS (2)
  1. HULIO [Suspect]
     Active Substance: ADALIMUMAB-FKJP
     Indication: Rheumatoid arthritis
     Dosage: UNK UNK, Q2W, (BI WEEKLY)
     Route: 058
     Dates: start: 20210705
  2. HULIO [Suspect]
     Active Substance: ADALIMUMAB-FKJP
     Indication: Psoriasis

REACTIONS (2)
  - Amyotrophic lateral sclerosis [Unknown]
  - Drug ineffective [Unknown]
